FAERS Safety Report 6803343-7 (Version None)
Quarter: 2010Q2

REPORT INFORMATION
  Report Type: 
  Country: None (occurrence: None)
  Receive Date: 20100628
  Receipt Date: 20100614
  Transmission Date: 20101027
  Serious: Yes (Death, Life-Threatening, Hospitalization, Other)
  Sender: FDA-Public Use
  Company Number: US-ROCHE-704131

PATIENT
  Sex: Female
  Weight: 55.3 kg

DRUGS (18)
  1. ACTEMRA [Suspect]
     Dosage: INFUSION, DOSE: 4 MG/KG
     Route: 042
     Dates: start: 20100209, end: 20100209
  2. ACTEMRA [Suspect]
     Dosage: DOSE: 4MG/KG
     Route: 042
     Dates: start: 20100310, end: 20100310
  3. ACTEMRA [Suspect]
     Dosage: DOSE: 4MG/KG
     Route: 042
     Dates: start: 20100407, end: 20100407
  4. ACTEMRA [Suspect]
     Dosage: INFUSION WAS INTERRUPTED DOSE: 4MG/KG
     Route: 042
     Dates: start: 20100505, end: 20100505
  5. ACTEMRA [Suspect]
     Dosage: INFUSION STOPPED, DOSE: 4MG/KG
     Route: 042
     Dates: start: 20100517, end: 20100517
  6. PREDNISONE [Concomitant]
     Dosage: 1 AND A HALF TABLET DAILY
     Route: 048
     Dates: start: 20091101
  7. ARAVA [Concomitant]
     Route: 048
  8. KETOPROFEN [Concomitant]
     Dosage: 1 CAPSULE DAILY WITH FOOD
     Route: 048
  9. NADOLOL [Concomitant]
     Route: 048
     Dates: start: 20090803
  10. KEFLEX [Concomitant]
     Dosage: FOR TEN DAYS
     Route: 048
  11. MOBIC [Concomitant]
     Route: 048
  12. CALCIUM/VITAMIN D [Concomitant]
  13. ENALAPRIL MALEATE [Concomitant]
     Route: 048
     Dates: start: 20050801
  14. LEFLUNOMIDE [Concomitant]
     Dates: start: 19990501, end: 20091116
  15. LEFLUNOMIDE [Concomitant]
  16. ORENCIA [Concomitant]
     Route: 042
     Dates: start: 20081101, end: 20090701
  17. ETANERCEPT [Concomitant]
     Route: 058
     Dates: start: 20000101
  18. MOBIC [Concomitant]
     Dates: start: 20100504

REACTIONS (7)
  - ANAPHYLACTIC REACTION [None]
  - APNOEA [None]
  - CARDIO-RESPIRATORY ARREST [None]
  - COMA [None]
  - DIZZINESS [None]
  - HYPOTENSION [None]
  - WHEEZING [None]
